FAERS Safety Report 5701718-0 (Version None)
Quarter: 2008Q2

REPORT INFORMATION
  Report Type: 
  Country: None (occurrence: None)
  Receive Date: 20080409
  Receipt Date: 20080409
  Transmission Date: 20081010
  Serious: Yes (Other)
  Sender: FDA-Public Use
  Company Number: None

PATIENT
  Age: 10 Year
  Sex: Female
  Weight: 38.5557 kg

DRUGS (1)
  1. SINGULAIR [Suspect]
     Indication: SEASONAL ALLERGY
     Dosage: 5MG ONCE A DAY PO
     Route: 048
     Dates: start: 20050420, end: 20080331

REACTIONS (8)
  - ABDOMINAL PAIN UPPER [None]
  - AGGRESSION [None]
  - AGITATION [None]
  - ANGER [None]
  - MOOD SWINGS [None]
  - MUSCLE SPASMS [None]
  - NIGHTMARE [None]
  - PHARYNGOLARYNGEAL PAIN [None]
